FAERS Safety Report 5626778-7 (Version None)
Quarter: 2008Q1

REPORT INFORMATION
  Report Type: 
  Country: None (occurrence: None)
  Receive Date: 20080214
  Receipt Date: 20080205
  Transmission Date: 20080703
  Serious: Yes (Other)
  Sender: FDA-Public Use
  Company Number: US-PFIZER INC-2008011927

PATIENT
  Sex: Female
  Weight: 87 kg

DRUGS (1)
  1. DEPO-PROVERA SUSPENSION/INJ [Suspect]
     Indication: ENDOMETRIOSIS
     Dosage: TEXT:EVERY 3 MONTHS

REACTIONS (4)
  - ARTHRALGIA [None]
  - DISABILITY [None]
  - HYPOAESTHESIA [None]
  - PAIN IN EXTREMITY [None]
